FAERS Safety Report 25903408 (Version 1)
Quarter: 2025Q4

REPORT INFORMATION
  Report Type: Spontaneous
  Country: CA (occurrence: CA)
  Receive Date: 20251009
  Receipt Date: 20251009
  Transmission Date: 20260118
  Serious: Yes (Other)
  Sender: BAUSCH AND LOMB
  Company Number: CA-BAUSCHBL-2025BNL029525

PATIENT

DRUGS (1)
  1. VYZULTA [Suspect]
     Active Substance: LATANOPROSTENE BUNOD
     Indication: Product used for unknown indication
     Dosage: GTT
     Route: 047

REACTIONS (1)
  - Macular oedema [Recovered/Resolved]
